FAERS Safety Report 7269311-9 (Version None)
Quarter: 2011Q1

REPORT INFORMATION
  Report Type: 
  Country: None (occurrence: None)
  Receive Date: 20110125
  Receipt Date: 20110112
  Transmission Date: 20110831
  Serious: Yes (Hospitalization)
  Sender: FDA-Public Use
  Company Number: 2011SP001552

PATIENT
  Age: 18 Year
  Sex: Female

DRUGS (13)
  1. TEMODAL [Suspect]
     Indication: BRAIN NEOPLASM MALIGNANT
     Dosage: 120 MG; QD; PO
     Route: 048
     Dates: start: 20100909, end: 20101026
  2. RADIOTHERAPY [Concomitant]
  3. BROMAZEPAM [Concomitant]
  4. GADOTERIC ACID (GADOTERIC ACID) [Suspect]
     Indication: X-RAY
     Dosage: (INBO) (INBO) (INBO)
     Dates: start: 20100818
  5. GADOTERIC ACID (GADOTERIC ACID) [Suspect]
     Indication: X-RAY
     Dosage: (INBO) (INBO) (INBO)
     Dates: start: 20101130
  6. GADOTERIC ACID (GADOTERIC ACID) [Suspect]
     Indication: X-RAY
     Dosage: (INBO) (INBO) (INBO)
     Dates: start: 20100810
  7. ESOMEZOL [Suspect]
     Indication: PRODUCT USED FOR UNKNOWN INDICATION
     Dosage: 40 MG; QD; PO
     Route: 048
     Dates: start: 20100901
  8. IOHEXOL (IOHEXAL /00550501/) [Suspect]
     Indication: X-RAY
     Dosage: (INBO) (INBO)
     Dates: start: 20100915
  9. IOHEXOL (IOHEXAL /00550501/) [Suspect]
     Indication: X-RAY
     Dosage: (INBO) (INBO)
     Dates: start: 20101006
  10. PENTAMIDINE (PENTAMIDINE) [Suspect]
     Indication: PROPHYLAXIS
     Dosage: 4 DF; RESP
     Route: 055
     Dates: start: 20101015, end: 20101201
  11. ONDANSERTRON HCL [Concomitant]
  12. DOMPERIDONE [Concomitant]
  13. DEXAMETHASONE [Concomitant]

REACTIONS (7)
  - CONTRAST MEDIA REACTION [None]
  - HYPERURICOSURIA [None]
  - NEPHROLITHIASIS [None]
  - URINARY TRACT INFECTION STAPHYLOCOCCAL [None]
  - RENAL TUBULAR DISORDER [None]
  - NITRITE URINE PRESENT [None]
  - NEPHROPATHY TOXIC [None]
